FAERS Safety Report 5293734-0 (Version None)
Quarter: 2007Q2

REPORT INFORMATION
  Report Type: 
  Country: None (occurrence: None)
  Receive Date: 20070411
  Receipt Date: 20070330
  Transmission Date: 20071010
  Serious: Yes (Hospitalization, Other)
  Sender: FDA-Public Use
  Company Number: US-PFIZER INC-2005170555

PATIENT
  Sex: Female

DRUGS (12)
  1. NEURONTIN [Suspect]
     Indication: PAIN
     Route: 048
  2. OXYCONTIN [Suspect]
     Route: 048
  3. VOLTAREN [Concomitant]
     Route: 048
  4. PAXIL [Concomitant]
     Route: 048
  5. VITAMIN CAP [Concomitant]
     Route: 048
  6. CALCIUM WITH VITAMIN D [Concomitant]
     Route: 048
  7. DARVOCET-N 100 [Concomitant]
  8. DURAGESIC-100 [Concomitant]
     Route: 062
  9. LASIX [Concomitant]
     Route: 048
  10. PEPCID [Concomitant]
     Route: 048
  11. AVELOX [Concomitant]
     Route: 048
  12. NEUTRA-PHOS [Concomitant]
     Route: 048

REACTIONS (4)
  - DRUG INEFFECTIVE [None]
  - OVERDOSE [None]
  - PNEUMONIA ASPIRATION [None]
  - SUICIDE ATTEMPT [None]
